FAERS Safety Report 8154820 (Version 2)
Quarter: 2012Q4

REPORT INFORMATION
  Report Type: Spontaneous
  Country: US (occurrence: None)
  Receive Date: 20110914
  Receipt Date: 20121115
  Transmission Date: 20130627
  Serious: Yes (Death, Other)
  Sender: FDA-Public Use
  Company Number: TPA2011A05411

PATIENT
  Age: 74 Year
  Sex: Male
  Weight: 113.4 kg

DRUGS (3)
  1. ACTOS [Suspect]
     Indication: TYPE 2 DIABETES MELLITUS
     Dosage: 1 IN 1 D, PER ORAL
     Route: 048
     Dates: start: 2001, end: 201010
  2. ULTRAM [Concomitant]
  3. UNKNOWN DIABETES MEDICATION (DRUG USED IN DIABETES) [Concomitant]

REACTIONS (5)
  - BLADDER CANCER [None]
  - BLOOD URINE PRESENT [None]
  - HEART RATE IRREGULAR [None]
  - METASTASES TO LIVER [None]
  - METASTASES TO BONE [None]
